FAERS Safety Report 17657170 (Version 3)
Quarter: 2020Q3

REPORT INFORMATION
  Report Type: Spontaneous
  Country: BR (occurrence: BR)
  Receive Date: 20200410
  Receipt Date: 20200731
  Transmission Date: 20201102
  Serious: Yes (Hospitalization)
  Sender: FDA-Public Use
  Company Number: BR-PURDUE-GBR-2020-0076148

PATIENT
  Age: 83 Year
  Sex: Male

DRUGS (9)
  1. CALCIUM [Concomitant]
     Active Substance: CALCIUM
     Indication: BONE DISORDER
     Dosage: REPORTED AS 3X DAILLY
  2. FOLIC ACID. [Concomitant]
     Active Substance: FOLIC ACID
     Indication: BONE DISORDER
     Dosage: REPORTED AS 1X DAILLY
  3. CALCIO                             /00751501/ [Concomitant]
     Dosage: UNK
  4. OMEPRAZOLE. [Concomitant]
     Active Substance: OMEPRAZOLE
     Indication: UNEVALUABLE THERAPY
     Dosage: REPORTED AS 1X DAILLY
  5. OXYCONTIN [Suspect]
     Active Substance: OXYCODONE HYDROCHLORIDE
     Indication: PAIN
     Dosage: 2 TABLET, Q8H (STRENGTH 10 MG)(2 TABLETS OF 10MG EVERY 8 HOURS, OR 20 MG EVERY 12 HOURS)
     Route: 048
     Dates: start: 202002, end: 20200610
  6. OXYCONTIN [Suspect]
     Active Substance: OXYCODONE HYDROCHLORIDE
     Dosage: 20 MG, Q12H (STRENGTH 20MG)(2 TABLETS OF 10MG EVERY 8 HOURS, OR 20 MG EVERY 12 HOURS)
     Route: 048
     Dates: start: 202002, end: 20200610
  7. VITAMIN D                          /00107901/ [Concomitant]
     Active Substance: ERGOCALCIFEROL
     Indication: BONE DISORDER
     Dosage: REPORTED AS 1X DAILLY
  8. MIRTAZAPINE. [Concomitant]
     Active Substance: MIRTAZAPINE
     Dosage: REPORTED AS 1 X DAILLY (STRENGTH 30MG)
  9. CITALOPRAM [Concomitant]
     Active Substance: CITALOPRAM HYDROBROMIDE
     Dosage: REPORTEF AS 2X DAILLY (STRENGTH 10 MG)

REACTIONS (3)
  - Dysuria [Recovered/Resolved]
  - Infection [Recovered/Resolved]
  - Pyrexia [Recovered/Resolved]

NARRATIVE: CASE EVENT DATE: 20200329
